FAERS Safety Report 9722290 (Version 3)
Quarter: 2014Q1

REPORT INFORMATION
  Report Type: Spontaneous
  Country: JP (occurrence: JP)
  Receive Date: 20131202
  Receipt Date: 20140310
  Transmission Date: 20141002
  Serious: Yes (Other)
  Sender: FDA-Public Use
  Company Number: JP-AMGEN-JPNSP2013066136

PATIENT
  Age: 71 Year
  Sex: Female

DRUGS (11)
  1. RANMARK [Suspect]
     Indication: PLASMA CELL MYELOMA
     Dosage: 120 MG, UNK
     Route: 058
     Dates: start: 20130410
  2. RANMARK [Suspect]
     Indication: PLASMA CELL MYELOMA
  3. ASPARA-CA [Concomitant]
     Dosage: UNKNOWN
     Route: 065
  4. ALFAROL [Concomitant]
     Dosage: UNKNOWN
     Route: 065
  5. THALED [Concomitant]
     Dosage: UNKNOWN
     Route: 065
  6. FEBURIC [Concomitant]
     Dosage: UNKNOWN
     Route: 065
  7. PYDOXAL [Concomitant]
     Dosage: UNKNOWN
     Route: 065
  8. ALKERAN                            /00006401/ [Concomitant]
     Indication: PLASMA CELL MYELOMA
     Dosage: 2 MG, QD
     Route: 048
     Dates: start: 20130523
  9. DIOVAN [Concomitant]
     Dosage: UNKNOWN
     Route: 065
  10. DECADRON                           /00016001/ [Concomitant]
     Indication: PLASMA CELL MYELOMA
     Dosage: 33 MG, QD
     Route: 041
     Dates: start: 20130408, end: 20130510
  11. PREDONINE                          /00016201/ [Concomitant]
     Indication: PLASMA CELL MYELOMA
     Route: 048
     Dates: start: 20130523

REACTIONS (1)
  - Osteonecrosis of jaw [Not Recovered/Not Resolved]
